FAERS Safety Report 24527769 (Version 1)
Quarter: 2024Q4

REPORT INFORMATION
  Report Type: Report from Study
  Country: MY (occurrence: MY)
  Receive Date: 20241021
  Receipt Date: 20241021
  Transmission Date: 20250115
  Serious: Yes (Other)
  Sender: UCB
  Company Number: MY-UCBSA-2024051747

PATIENT
  Age: 2 Month

DRUGS (7)
  1. LEVETIRACETAM [Suspect]
     Active Substance: LEVETIRACETAM
     Indication: Status epilepticus
     Dosage: UNK
  2. HYDROXOCOBALAMIN [Suspect]
     Active Substance: HYDROXOCOBALAMIN
     Indication: Hyperhomocysteinaemia
     Dosage: UNK
     Route: 030
  3. BETAINE [Suspect]
     Active Substance: BETAINE
     Indication: Hyperhomocysteinaemia
     Dosage: UNK
  4. METHIONINE [Suspect]
     Active Substance: METHIONINE
     Indication: Hyperhomocysteinaemia
     Dosage: UNK
  5. RIBOFLAVIN [Suspect]
     Active Substance: RIBOFLAVIN
     Indication: Hyperhomocysteinaemia
     Dosage: UNK
  6. FOLIC ACID [Suspect]
     Active Substance: FOLIC ACID
     Indication: Hyperhomocysteinaemia
     Dosage: UNK
  7. PYRIDOXINE [Suspect]
     Active Substance: PYRIDOXINE
     Indication: Hyperhomocysteinaemia
     Dosage: UNK

REACTIONS (9)
  - Seizure [Unknown]
  - Hydrocephalus [Unknown]
  - Dystonia [Unknown]
  - Nystagmus [Unknown]
  - Developmental delay [Unknown]
  - Hyperreflexia [Unknown]
  - Strabismus [Unknown]
  - Ventriculo-peritoneal shunt [Unknown]
  - Off label use [Unknown]
